FAERS Safety Report 9528353 (Version 3)
Quarter: 2013Q4

REPORT INFORMATION
  Report Type: Spontaneous
  Country: JP (occurrence: JP)
  Receive Date: 20130917
  Receipt Date: 20131213
  Transmission Date: 20140711
  Serious: Yes (Other)
  Sender: FDA-Public Use
  Company Number: JP-ROCHE-1270240

PATIENT
  Age: 80 Year
  Sex: Female

DRUGS (15)
  1. AVASTIN [Suspect]
     Indication: COLON CANCER
     Dosage: DOSAGE IS UNCERTAIN. ?TWO COOL
     Route: 041
     Dates: start: 20130820
  2. AVASTIN [Suspect]
     Indication: COLON CANCER
     Dosage: DOSAGE IS UNCERTAIN. ?TWO COOL
     Route: 041
  3. AVASTIN [Suspect]
     Indication: COLON CANCER
     Dosage: DOSAGE IS UNCERTAIN. ?TWO COOL
     Route: 041
  4. ELPLAT [Suspect]
     Indication: COLON CANCER
     Dosage: DOSAGE IS UNCERTAIN. ?TWO COOL
     Route: 041
  5. ELPLAT [Suspect]
     Indication: COLON CANCER
     Dosage: DOSAGE IS UNCERTAIN. ?TWO COOL
     Route: 041
  6. 5-FU [Concomitant]
     Indication: COLON CANCER
     Dosage: DOSAGE IS UNCERTAIN. ?TWO COOL
     Route: 040
  7. 5-FU [Concomitant]
     Indication: COLON CANCER
     Dosage: DOSAGE IS UNCERTAIN. ?TWO COOL
     Route: 041
  8. 5-FU [Concomitant]
     Indication: COLON CANCER
     Dosage: DOSAGE IS UNCERTAIN. ?TWO COOL
     Route: 040
  9. 5-FU [Concomitant]
     Indication: COLON CANCER
     Dosage: DOSAGE IS UNCERTAIN. ?TWO COOL
     Route: 041
  10. 5-FU [Concomitant]
     Indication: COLON CANCER
     Dosage: DOSAGE IS UNCERTAIN. ?TWO COOL
     Route: 040
  11. 5-FU [Concomitant]
     Indication: COLON CANCER
     Dosage: DOSAGE IS UNCERTAIN. ?TWO COOL
     Route: 041
  12. CALCIUM LEVOFOLINATE [Concomitant]
     Indication: COLON CANCER
     Dosage: DOSAGE IS UNCERTAIN. ?TWO COOL
     Route: 041
  13. CALCIUM LEVOFOLINATE [Concomitant]
     Indication: COLON CANCER
     Dosage: DOSAGE IS UNCERTAIN. ?TWO COOL
     Route: 041
  14. CALCIUM LEVOFOLINATE [Concomitant]
     Indication: COLON CANCER
     Dosage: DOSAGE IS UNCERTAIN. ?TWO COOL
     Route: 041
  15. IRINOTECAN HYDROCHLORIDE [Concomitant]
     Indication: COLON CANCER
     Dosage: DOSAGE IS UNCERTAIN. ?TWO COOL
     Route: 041

REACTIONS (8)
  - Metastases to bone [Unknown]
  - Renal impairment [Not Recovered/Not Resolved]
  - Liver function test abnormal [Not Recovered/Not Resolved]
  - Hypertension [Recovered/Resolved]
  - Blood calcium increased [Recovering/Resolving]
  - Somnolence [Recovering/Resolving]
  - Epistaxis [Unknown]
  - Neuropathy peripheral [Unknown]
